FAERS Safety Report 8401036-6 (Version None)
Quarter: 2012Q2

REPORT INFORMATION
  Report Type: 
  Country: None (occurrence: None)
  Receive Date: 20120525
  Receipt Date: 20120514
  Transmission Date: 20120825
  Serious: Yes (Hospitalization, Other)
  Sender: FDA-Public Use
  Company Number: 2012P1026556

PATIENT
  Age: 13 Month
  Sex: Female
  Weight: 12 kg

DRUGS (1)
  1. DIPHENHYDRAMINE HCL [Suspect]
     Indication: ACCIDENTAL OVERDOSE
     Dosage: 600 MG;PO
     Route: 048

REACTIONS (13)
  - LETHARGY [None]
  - OVERDOSE [None]
  - GRAND MAL CONVULSION [None]
  - FLUSHING [None]
  - RESPIRATORY RATE INCREASED [None]
  - MENTAL STATUS CHANGES [None]
  - SINUS TACHYCARDIA [None]
  - NYSTAGMUS [None]
  - AGITATION [None]
  - ELECTROCARDIOGRAM QT PROLONGED [None]
  - ACCIDENTAL DRUG INTAKE BY CHILD [None]
  - DRY SKIN [None]
  - BLOOD GLUCOSE INCREASED [None]
